FAERS Safety Report 25103283 (Version 1)
Quarter: 2025Q1

REPORT INFORMATION
  Report Type: Spontaneous
  Country: US (occurrence: US)
  Receive Date: 20250321
  Receipt Date: 20250321
  Transmission Date: 20250409
  Serious: No
  Sender: NOVITIUM PHARMA
  Company Number: US-NOVITIUMPHARMA-2025USNVP00577

PATIENT
  Age: 61 Year
  Sex: Female

DRUGS (3)
  1. MELOXICAM [Suspect]
     Active Substance: MELOXICAM
     Indication: Intervertebral disc protrusion
  2. TYMLOS [Concomitant]
     Active Substance: ABALOPARATIDE
     Route: 058
     Dates: start: 20241028
  3. TYMLOS [Concomitant]
     Active Substance: ABALOPARATIDE
     Route: 058

REACTIONS (1)
  - Dizziness [Recovering/Resolving]
